FAERS Safety Report 18614956 (Version 5)
Quarter: 2022Q1

REPORT INFORMATION
  Report Type: Report from Study
  Country: BR (occurrence: BR)
  Receive Date: 20201214
  Receipt Date: 20220106
  Transmission Date: 20220423
  Serious: Yes (Hospitalization, Other)
  Sender: FDA-Public Use
  Company Number: BR-TAKEDA-BR202000448

PATIENT
  Sex: Male
  Weight: 45 kg

DRUGS (14)
  1. HEMO-8R [Suspect]
     Active Substance: ANTIHEMOPHILIC FACTOR, HUMAN RECOMBINANT
     Indication: Factor VIII deficiency
     Dosage: 1000 INTERNATIONAL UNIT, TID
     Route: 042
     Dates: start: 20000513
  2. HEMO-8R [Suspect]
     Active Substance: ANTIHEMOPHILIC FACTOR, HUMAN RECOMBINANT
     Dosage: 1000 INTERNATIONAL UNIT, TID
     Route: 042
     Dates: start: 20000513
  3. HEMO-8R [Suspect]
     Active Substance: ANTIHEMOPHILIC FACTOR, HUMAN RECOMBINANT
     Dosage: 1250 INTERNATIONAL UNIT, QD
     Route: 042
     Dates: start: 20000513
  4. HEMO-8R [Suspect]
     Active Substance: ANTIHEMOPHILIC FACTOR, HUMAN RECOMBINANT
     Dosage: 1000 INTERNATIONAL UNIT, QD
     Route: 042
     Dates: start: 20191226
  5. HEMO-8R [Suspect]
     Active Substance: ANTIHEMOPHILIC FACTOR, HUMAN RECOMBINANT
     Dosage: 1250 INTERNATIONAL UNIT, QD
     Route: 042
     Dates: start: 20191225
  6. IBUPROFEN [Concomitant]
     Active Substance: IBUPROFEN
     Indication: Arthralgia
     Dosage: TABLET
     Route: 065
  7. IBUPROFEN [Concomitant]
     Active Substance: IBUPROFEN
     Indication: Pain
  8. IBUPROFEN [Concomitant]
     Active Substance: IBUPROFEN
     Indication: Inflammation
  9. TRANSAMIN [Concomitant]
     Active Substance: TRANEXAMIC ACID
     Dosage: UNK UNK, Q12H
     Route: 042
     Dates: start: 20210215, end: 20210709
  10. OMEPRAZOLE [Concomitant]
     Active Substance: OMEPRAZOLE
     Dosage: 40 MILLIGRAM, QD
  11. ACETAMINOPHEN\CODEINE PHOSPHATE [Concomitant]
     Active Substance: ACETAMINOPHEN\CODEINE PHOSPHATE
     Indication: Pain
     Dosage: 30 MILLIGRAM
  12. AMITRIPTYLINE [Concomitant]
     Active Substance: AMITRIPTYLINE
     Indication: Muscle relaxant therapy
     Dosage: 25 MILLIGRAM, QD
  13. SERETIDE [Concomitant]
     Active Substance: FLUTICASONE PROPIONATE\SALMETEROL XINAFOATE
     Dosage: UNK UNK, BID
  14. IBUPROFEN [Concomitant]
     Active Substance: IBUPROFEN
     Indication: Pain
     Dosage: 100 MILLIGRAM, Q12H

REACTIONS (19)
  - Pulmonary haemorrhage [Recovered/Resolved]
  - Haemoptysis [Not Recovered/Not Resolved]
  - Bronchiectasis [Recovering/Resolving]
  - Tuberculosis [Recovered/Resolved with Sequelae]
  - Lung disorder [Not Recovered/Not Resolved]
  - COVID-19 [Recovered/Resolved]
  - Purulent discharge [Recovering/Resolving]
  - Back pain [Unknown]
  - Eye pain [Recovered/Resolved]
  - Weight decreased [Unknown]
  - Respiratory disorder [Unknown]
  - Weight increased [Unknown]
  - Influenza [Not Recovered/Not Resolved]
  - Pruritus [Unknown]
  - Product availability issue [Unknown]
  - Incorrect dose administered by product [Unknown]
  - Post procedural discomfort [Recovering/Resolving]
  - Procedural pain [Recovering/Resolving]
  - Illness [Unknown]

NARRATIVE: CASE EVENT DATE: 20130101
